FAERS Safety Report 6371521-X (Version None)
Quarter: 2009Q3

REPORT INFORMATION
  Report Type: 
  Country: None (occurrence: None)
  Receive Date: 20090923
  Receipt Date: 20080229
  Transmission Date: 20100115
  Serious: Yes (Other)
  Sender: FDA-Public Use
  Company Number: US-ASTRAZENECA-2007UW27643

PATIENT
  Age: 167 Month
  Sex: Female
  Weight: 78.2 kg

DRUGS (6)
  1. SEROQUEL [Suspect]
     Indication: DEPRESSION
     Route: 048
     Dates: start: 20041018
  2. SEROQUEL [Suspect]
     Route: 048
     Dates: start: 20041001, end: 20070101
  3. INSULIN NOVOLOG [Concomitant]
     Dates: start: 20041023
  4. LITHIUM CARBONATE CR [Concomitant]
     Dates: start: 20041023
  5. LORAZEPAM [Concomitant]
     Dosage: 1-2 MG
     Dates: start: 20041023
  6. ACETAMINOPHEN [Concomitant]
     Dates: start: 20020611

REACTIONS (3)
  - DIABETES MELLITUS [None]
  - DIABETIC KETOACIDOSIS [None]
  - TYPE 1 DIABETES MELLITUS [None]
